FAERS Safety Report 5254416-4 (Version None)
Quarter: 2007Q1

REPORT INFORMATION
  Report Type: 
  Country: None (occurrence: None)
  Receive Date: 20070302
  Receipt Date: 20070228
  Transmission Date: 20070707
  Serious: Yes (Hospitalization)
  Sender: FDA-Public Use
  Company Number: US-BOEHRINGER INGELHEIM PHARMACEUTICALS, INC.-2007-BP-00625BP

PATIENT
  Sex: Female

DRUGS (7)
  1. SPIRIVA [Suspect]
     Indication: CHRONIC OBSTRUCTIVE PULMONARY DISEASE
     Route: 055
     Dates: start: 20050101, end: 20070101
  2. ASMANEX TWISTHALER [Concomitant]
  3. NEXIUM [Concomitant]
  4. DIOVAN [Concomitant]
  5. ZETIA [Concomitant]
  6. FLONASE [Concomitant]
  7. BONIVA [Concomitant]

REACTIONS (4)
  - DYSURIA [None]
  - THROMBOSIS [None]
  - URINARY RETENTION [None]
  - URINARY TRACT INFECTION [None]
